FAERS Safety Report 25224093 (Version 3)
Quarter: 2025Q2

REPORT INFORMATION
  Report Type: Report from Study
  Country: US (occurrence: US)
  Receive Date: 20250422
  Receipt Date: 20250529
  Transmission Date: 20250717
  Serious: Yes (Death, Other)
  Sender: ACADIA PHARMACEUTICALS
  Company Number: US-ACADIA PHARMACEUTICALS INC.-ACA-2025-PIM-004664

PATIENT
  Age: 91 Year
  Sex: Female

DRUGS (10)
  1. NUPLAZID [Suspect]
     Active Substance: PIMAVANSERIN TARTRATE
     Indication: Parkinson^s disease
     Dosage: 34 MILLIGRAM, QD
     Route: 048
     Dates: start: 20230320
  2. NUPLAZID [Suspect]
     Active Substance: PIMAVANSERIN TARTRATE
     Indication: Parkinson^s disease psychosis
  3. CARBIDOPA LEVODOPA [Concomitant]
     Active Substance: CARBIDOPA\LEVODOPA
  4. FAMOTIDINE [Concomitant]
     Active Substance: FAMOTIDINE
  5. ETHAMBUTOL\ISONIAZID [Concomitant]
     Active Substance: ETHAMBUTOL\ISONIAZID
  6. FOLATE SODIUM [Concomitant]
     Active Substance: FOLATE SODIUM
  7. PYRIDOXINE [Concomitant]
     Active Substance: PYRIDOXINE
  8. LASIX [Concomitant]
     Active Substance: FUROSEMIDE
  9. IPRATROPIUM [Concomitant]
     Active Substance: IPRATROPIUM
  10. ELIQUIS [Concomitant]
     Active Substance: APIXABAN

REACTIONS (1)
  - Death [Fatal]

NARRATIVE: CASE EVENT DATE: 20250316
